FAERS Safety Report 22259577 (Version 1)
Quarter: 2023Q2

REPORT INFORMATION
  Report Type: Report from Study
  Country: IT (occurrence: IT)
  Receive Date: 20230427
  Receipt Date: 20230427
  Transmission Date: 20230722
  Serious: Yes (Other)
  Sender: FDA-Public Use
  Company Number: IT-TAKEDA-2023TUS041162

PATIENT
  Age: 63 Year
  Sex: Female

DRUGS (7)
  1. TEDUGLUTIDE [Suspect]
     Active Substance: TEDUGLUTIDE
     Indication: Short-bowel syndrome
     Dosage: 3.2 MILLIGRAM, QD
     Route: 042
     Dates: start: 20210614, end: 202108
  2. TEDUGLUTIDE [Suspect]
     Active Substance: TEDUGLUTIDE
     Indication: Short-bowel syndrome
     Dosage: 3.2 MILLIGRAM, QD
     Route: 042
     Dates: start: 20210614, end: 202108
  3. TEDUGLUTIDE [Suspect]
     Active Substance: TEDUGLUTIDE
     Indication: Short-bowel syndrome
     Dosage: 3.2 MILLIGRAM, QD
     Route: 042
     Dates: start: 20210614, end: 202108
  4. TEDUGLUTIDE [Suspect]
     Active Substance: TEDUGLUTIDE
     Indication: Short-bowel syndrome
     Dosage: 3.2 MILLIGRAM, QD
     Route: 042
     Dates: start: 20210614, end: 202108
  5. DEURSIL [Concomitant]
     Active Substance: URSODIOL
     Indication: Cholelithiasis
     Dosage: 450 MILLIGRAM, QD
     Route: 048
     Dates: start: 20220930
  6. TERIPARATIDE [Concomitant]
     Active Substance: TERIPARATIDE
     Indication: Bone density increased
     Dosage: 0.02 MILLILITER, QD
     Route: 058
     Dates: start: 20220504
  7. PSYLLIUM [Concomitant]
     Active Substance: PLANTAGO SEED
     Indication: Intestinal transit time
     Dosage: 1 DOSAGE FORM, BID
     Route: 048
     Dates: start: 20220215, end: 20220715

REACTIONS (1)
  - Anastomotic ulcer [Not Recovered/Not Resolved]

NARRATIVE: CASE EVENT DATE: 20230209
